FAERS Safety Report 6326472-3 (Version None)
Quarter: 2009Q3

REPORT INFORMATION
  Report Type: 
  Country: None (occurrence: None)
  Receive Date: 20090821
  Receipt Date: 20090813
  Transmission Date: 20100115
  Serious: Yes (Other)
  Sender: FDA-Public Use
  Company Number: B0571779A

PATIENT
  Age: 55 Year
  Sex: Male
  Weight: 86.8185 kg

DRUGS (3)
  1. WELLBUTRIN XL [Suspect]
     Indication: DEPRESSION
     Dosage: 300 MG / IN THE MORNING /
     Dates: start: 20081101
  2. TRAZODONE [Concomitant]
  3. LAMOTRIGINE [Concomitant]

REACTIONS (4)
  - CONDITION AGGRAVATED [None]
  - INSOMNIA [None]
  - LIBIDO INCREASED [None]
  - PSORIASIS [None]
